FAERS Safety Report 6314953-8 (Version None)
Quarter: 2009Q3

REPORT INFORMATION
  Report Type: 
  Country: None (occurrence: None)
  Receive Date: 20090819
  Receipt Date: 20090811
  Transmission Date: 20100115
  Serious: Yes (Other)
  Sender: FDA-Public Use
  Company Number: A0802713A

PATIENT
  Age: 65 Year
  Sex: Male

DRUGS (1)
  1. AVANDIA [Suspect]
     Indication: DIABETES MELLITUS
     Dosage: 4MG PER DAY
     Route: 048
     Dates: start: 20050101, end: 20090101

REACTIONS (3)
  - ATRIAL FIBRILLATION [None]
  - CARDIAC FAILURE CONGESTIVE [None]
  - RENAL FAILURE [None]
